FAERS Safety Report 4871580-7 (Version None)
Quarter: 2005Q4

REPORT INFORMATION
  Report Type: 
  Country: None (occurrence: None)
  Receive Date: 20051230
  Receipt Date: 20051221
  Transmission Date: 20060501
  Serious: Yes (Death)
  Sender: FDA-Public Use
  Company Number: GRP05000305

PATIENT
  Age: 71 Year
  Sex: Female

DRUGS (3)
  1. ACTONEL [Suspect]
     Indication: OSTEOPOROSIS
     Dosage: ORAL
     Route: 048
     Dates: start: 20051204
  2. FALITHROM ^FAHLBERG^ (PHENPROCOUMON) [Concomitant]
  3. VERAPAMIL [Concomitant]

REACTIONS (2)
  - CEREBRAL HAEMORRHAGE [None]
  - SLEEP DISORDER [None]
